FAERS Safety Report 7353612-X (Version None)
Quarter: 2011Q1

REPORT INFORMATION
  Report Type: 
  Country: None (occurrence: None)
  Receive Date: 20110315
  Receipt Date: 20110304
  Transmission Date: 20110831
  Serious: Yes (Life-Threatening, Hospitalization, Other)
  Sender: FDA-Public Use
  Company Number: JP-PFIZER INC-2011030248

PATIENT
  Age: 73 Year
  Sex: Female
  Weight: 43 kg

DRUGS (5)
  1. BETAMETHASONE [Concomitant]
     Indication: PREMEDICATION
     Dosage: 8 MG, UNK
     Route: 041
     Dates: start: 20101203, end: 20101203
  2. CAMPTOSAR [Suspect]
     Indication: RECTAL CANCER
     Dosage: 180 MG (142.9 MG/M2)
     Route: 041
     Dates: start: 20101203, end: 20101203
  3. TS-1 [Concomitant]
     Indication: RECTAL CANCER
     Dosage: 50 MG, 2X/DAY
     Route: 048
     Dates: start: 20101203, end: 20101214
  4. AVASTIN [Concomitant]
     Indication: RECTAL CANCER
     Dosage: 300 MG, UNK
     Route: 041
     Dates: start: 20101203, end: 20101203
  5. ALOXI [Concomitant]
     Indication: PREMEDICATION
     Dosage: 0.75 MG, UNK
     Route: 041
     Dates: start: 20101203, end: 20101203

REACTIONS (5)
  - ABDOMINAL DISTENSION [None]
  - NEUTROPENIA [None]
  - ABDOMINAL PAIN [None]
  - LEUKOPENIA [None]
  - DIARRHOEA [None]
